FAERS Safety Report 7186862-6 (Version None)
Quarter: 2010Q4

REPORT INFORMATION
  Report Type: 
  Country: None (occurrence: None)
  Receive Date: 20101222
  Receipt Date: 20101213
  Transmission Date: 20110411
  Serious: Yes (Other)
  Sender: FDA-Public Use
  Company Number: B0690073A

PATIENT
  Sex: Male

DRUGS (1)
  1. BACTROBAN [Suspect]
     Indication: SINUS DISORDER
     Route: 065
     Dates: start: 20101206

REACTIONS (3)
  - BLINDNESS [None]
  - PRODUCT QUALITY ISSUE [None]
  - VISUAL IMPAIRMENT [None]
